FAERS Safety Report 16965032 (Version 1)
Quarter: 2019Q4

REPORT INFORMATION
  Report Type: Spontaneous
  Country: GB (occurrence: GB)
  Receive Date: 20191028
  Receipt Date: 20191028
  Transmission Date: 20200122
  Serious: Yes (Other)
  Sender: FDA-Public Use
  Company Number: GB-TEVA-2019-GB-1127662

PATIENT
  Age: 46 Year
  Sex: Female
  Weight: 72 kg

DRUGS (5)
  1. MIRENA [Concomitant]
     Active Substance: LEVONORGESTREL
     Dosage: USE AS DIRECTED
     Dates: start: 20190710
  2. MICONAZOLE. [Concomitant]
     Active Substance: MICONAZOLE
     Dosage: FOR 10-14DAYS
     Dates: start: 20191001
  3. TOPIRAMATE. [Concomitant]
     Active Substance: TOPIRAMATE
     Dosage: NIGHT
     Dates: start: 20190326
  4. FLUCONAZOLE. [Suspect]
     Active Substance: FLUCONAZOLE
     Dosage: 50 MG
     Dates: start: 20190930
  5. SUMATRIPTAN. [Concomitant]
     Active Substance: SUMATRIPTAN
     Indication: MIGRAINE
     Dosage: AT ONSET OF MIGRAINE, DOSE MAY BE REPEATED,1DF
     Dates: start: 20190114

REACTIONS (1)
  - Urticaria [Recovered/Resolved]

NARRATIVE: CASE EVENT DATE: 20191001
